FAERS Safety Report 5942131-0 (Version None)
Quarter: 2008Q4

REPORT INFORMATION
  Report Type: 
  Country: None (occurrence: None)
  Receive Date: 20081105
  Receipt Date: 20081023
  Transmission Date: 20090506
  Serious: Yes (Other)
  Sender: FDA-Public Use
  Company Number: FR-SANOFI-SYNTHELABO-A01200811477

PATIENT
  Sex: Male

DRUGS (9)
  1. AMITRIPTYLINE HCL [Concomitant]
     Indication: NEURALGIA
     Dosage: UNK
  2. ESCITALOPRAM OXALATE [Concomitant]
     Indication: DEPRESSION
     Dosage: 10 MG
  3. OLANZAPINE [Concomitant]
     Indication: DEPRESSION
     Dosage: 10 MG
  4. ALLOPURINOL [Concomitant]
     Indication: GOUT
     Dosage: 100 MG
  5. TRAMADOL HCL [Concomitant]
     Indication: PAIN
     Dosage: UNK
  6. METFORMIN HCL [Concomitant]
     Indication: DIABETES MELLITUS
     Dosage: 500 MG
  7. ZOLPIDEM TARTRATE [Concomitant]
     Indication: INSOMNIA
     Dosage: 10 MG
  8. LORAZEPAM [Concomitant]
     Indication: INSOMNIA
     Dosage: 2.5 MG
  9. ELIGARD [Suspect]
     Indication: PROSTATE CANCER
     Dosage: 22.5 MG
     Route: 058
     Dates: start: 20071110, end: 20080808

REACTIONS (6)
  - DELIRIUM [None]
  - DEPRESSION [None]
  - HOT FLUSH [None]
  - LOGORRHOEA [None]
  - PERSECUTORY DELUSION [None]
  - PSYCHOMOTOR HYPERACTIVITY [None]
